FAERS Safety Report 8417844-1 (Version None)
Quarter: 2012Q2

REPORT INFORMATION
  Report Type: 
  Country: None (occurrence: None)
  Receive Date: 20120607
  Receipt Date: 20120601
  Transmission Date: 20120825
  Serious: No
  Sender: FDA-Public Use
  Company Number: US-PFIZER INC-2012132548

PATIENT

DRUGS (6)
  1. SULFUR [Suspect]
     Dosage: UNK
  2. IBUPROFEN [Suspect]
     Dosage: UNK
  3. CEPHALEXIN [Suspect]
     Dosage: UNK
  4. BENZATHINE PENICILLIN G [Suspect]
     Dosage: UNK
  5. NAPROXEN SODIUM [Suspect]
     Dosage: UNK
  6. ASPIRIN [Suspect]
     Dosage: UNK

REACTIONS (1)
  - DRUG HYPERSENSITIVITY [None]
